FAERS Safety Report 18665756 (Version 1)
Quarter: 2020Q4

REPORT INFORMATION
  Report Type: Spontaneous
  Country: US (occurrence: US)
  Receive Date: 20201226
  Receipt Date: 20201226
  Transmission Date: 20210114
  Serious: No
  Sender: FDA-Public Use
  Company Number: US-009507513-2012USA009339

PATIENT
  Sex: Female

DRUGS (1)
  1. NEXPLANON [Suspect]
     Active Substance: ETONOGESTREL
     Indication: CONTRACEPTION
     Dosage: 1 DOSAGE FORM,ONCE
     Route: 059
     Dates: start: 201710, end: 2020

REACTIONS (2)
  - Incorrect product administration duration [Unknown]
  - Adverse event [Unknown]

NARRATIVE: CASE EVENT DATE: 2020
